FAERS Safety Report 5896222-3 (Version None)
Quarter: 2008Q3

REPORT INFORMATION
  Report Type: 
  Country: None (occurrence: None)
  Receive Date: 20080924
  Receipt Date: 20080912
  Transmission Date: 20090109
  Serious: Yes (Other)
  Sender: FDA-Public Use
  Company Number: CA-PFIZER INC-2007092548

PATIENT
  Sex: Female
  Weight: 68 kg

DRUGS (5)
  1. CHANTIX [Suspect]
     Indication: SMOKING CESSATION THERAPY
     Route: 048
     Dates: start: 20070928, end: 20071028
  2. PREDNISONE [Suspect]
  3. THYROID TAB [Concomitant]
     Route: 048
     Dates: start: 20070801
  4. VITAMIN TAB [Concomitant]
     Route: 048
  5. LEVOTHYROXINE SODIUM [Concomitant]
     Indication: HYPOTHYROIDISM

REACTIONS (45)
  - ABDOMINAL PAIN UPPER [None]
  - ABNORMAL BEHAVIOUR [None]
  - ABNORMAL DREAMS [None]
  - AGGRESSION [None]
  - AMNESIA [None]
  - ANXIETY [None]
  - BALANCE DISORDER [None]
  - BLOOD DISORDER [None]
  - BLOOD GLUCOSE INCREASED [None]
  - CONFUSIONAL STATE [None]
  - DISTURBANCE IN ATTENTION [None]
  - DIZZINESS [None]
  - DYSPNOEA [None]
  - ECCHYMOSIS [None]
  - EMOTIONAL DISTRESS [None]
  - ERYTHEMA [None]
  - FEAR [None]
  - FEELING ABNORMAL [None]
  - HEADACHE [None]
  - HYPERAESTHESIA [None]
  - HYPERSENSITIVITY [None]
  - HYPERTENSION [None]
  - HYPOAESTHESIA [None]
  - IMPAIRED DRIVING ABILITY [None]
  - IMPAIRED WORK ABILITY [None]
  - INSOMNIA [None]
  - LIP EXFOLIATION [None]
  - LIP SWELLING [None]
  - LOCAL SWELLING [None]
  - NAIL DISORDER [None]
  - NAUSEA [None]
  - OEDEMA PERIPHERAL [None]
  - PERSONALITY DISORDER [None]
  - PSYCHIATRIC SYMPTOM [None]
  - RASH MACULO-PAPULAR [None]
  - SKIN DISCOLOURATION [None]
  - SKIN EXFOLIATION [None]
  - SKIN HAEMORRHAGE [None]
  - SWELLING FACE [None]
  - THINKING ABNORMAL [None]
  - TREMOR [None]
  - URINARY TRACT INFECTION [None]
  - URTICARIA [None]
  - VAGINAL INFECTION [None]
  - VULVOVAGINAL PRURITUS [None]
